FAERS Safety Report 11738558 (Version 1)
Quarter: 2015Q4

REPORT INFORMATION
  Report Type: Spontaneous
  Country: US (occurrence: US)
  Receive Date: 20151113
  Receipt Date: 20151113
  Transmission Date: 20160304
  Serious: No
  Sender: FDA-Public Use
  Company Number: US-009507513-1510USA015295

PATIENT
  Age: 3 Year
  Sex: Female

DRUGS (5)
  1. BETAMETHASONE DIPROPIONATE AUGMENTED [Suspect]
     Active Substance: BETAMETHASONE DIPROPIONATE
     Indication: URTICARIA PIGMENTOSA
     Dosage: UNK
     Route: 061
  2. CROMOLYN SODIUM - USP (WARRICK) [Suspect]
     Active Substance: CROMOLYN SODIUM
     Indication: URTICARIA PIGMENTOSA
     Dosage: 100 MG, QID
     Route: 048
  3. DIPHENHYDRAMINE. [Suspect]
     Active Substance: DIPHENHYDRAMINE
     Indication: MACULE
  4. RANITIDINE [Suspect]
     Active Substance: RANITIDINE\RANITIDINE HYDROCHLORIDE
     Indication: MACULE
  5. LORATADINE. [Suspect]
     Active Substance: LORATADINE
     Indication: MACULE
     Route: 048

REACTIONS (1)
  - Drug ineffective [Unknown]
